FAERS Safety Report 5446634-7 (Version None)
Quarter: 2007Q3

REPORT INFORMATION
  Report Type: 
  Country: None (occurrence: None)
  Receive Date: 20070907
  Receipt Date: 20070828
  Transmission Date: 20080115
  Serious: Yes (Other)
  Sender: FDA-Public Use
  Company Number: US-PFIZER INC-2007063203

PATIENT
  Sex: Female
  Weight: 86.6 kg

DRUGS (8)
  1. CHANTIX [Suspect]
     Indication: SMOKING CESSATION THERAPY
     Route: 048
     Dates: start: 20070716, end: 20070718
  2. HYDROCHLOROTHIAZIDE [Concomitant]
     Indication: HYPERTENSION
  3. ZOCOR [Concomitant]
     Indication: BLOOD CHOLESTEROL INCREASED
  4. TRAZODONE HCL [Concomitant]
  5. ESTRACE [Concomitant]
  6. RANITIDINE [Concomitant]
  7. FLEXERIL [Concomitant]
  8. MOTRIN [Concomitant]

REACTIONS (8)
  - FOOT FRACTURE [None]
  - HYPERHIDROSIS [None]
  - HYPOKINESIA [None]
  - HYPOTENSION [None]
  - LOSS OF CONSCIOUSNESS [None]
  - MUSCULOSKELETAL DISCOMFORT [None]
  - NAUSEA [None]
  - VOMITING [None]
